FAERS Safety Report 8902246 (Version 1)
Quarter: 2012Q4

REPORT INFORMATION
  Report Type: 
  Country: AR (occurrence: AR)
  Receive Date: 20121112
  Receipt Date: 20121112
  Transmission Date: 20130627
  Serious: Yes (Hospitalization)
  Sender: FDA-Public Use
  Company Number: PHHY2012AR092268

PATIENT
  Sex: Male

DRUGS (2)
  1. ONBREZ [Suspect]
     Indication: CHRONIC OBSTRUCTIVE PULMONARY DISEASE
     Dosage: 300 ug, TID
  2. INSULIN [Concomitant]

REACTIONS (3)
  - Arterial occlusive disease [Not Recovered/Not Resolved]
  - Nail infection [Not Recovered/Not Resolved]
  - Overdose [Unknown]
